FAERS Safety Report 5260980-1 (Version None)
Quarter: 2007Q1

REPORT INFORMATION
  Report Type: 
  Country: None (occurrence: None)
  Receive Date: 20070309
  Receipt Date: 20070301
  Transmission Date: 20070707
  Serious: Yes (Death)
  Sender: FDA-Public Use
  Company Number: US-ABBOTT-07P-163-0355526-01

PATIENT
  Sex: Male
  Weight: 102.7 kg

DRUGS (17)
  1. KALETRA [Suspect]
     Indication: HIV INFECTION
     Dosage: 400/100
     Route: 048
     Dates: start: 20060323, end: 20060820
  2. KALETRA [Suspect]
     Dates: end: 20070101
  3. ATORVASTATIN [Concomitant]
     Indication: HYPERTRIGLYCERIDAEMIA
     Dates: start: 20060102, end: 20060518
  4. PROPACET 100 [Concomitant]
     Indication: PAIN
     Dates: start: 20060228, end: 20060518
  5. DILTIAZEM HYDROCHLORIDE [Concomitant]
     Indication: HYPERTENSION
     Dates: start: 20060102, end: 20060518
  6. METOPROLOL SUCCINATE [Concomitant]
     Indication: HYPERTENSION
     Dates: start: 20060228, end: 20060518
  7. ACETYLSALICYLIC ACID SRT [Concomitant]
     Indication: ISCHAEMIC HEART DISEASE PROPHYLAXIS
     Dates: start: 20060102, end: 20060518
  8. HYZAAR [Concomitant]
     Indication: HYPERTENSION
     Dosage: 100 MG - 25 MG
     Dates: start: 20060518, end: 20060814
  9. AMLODIPINE BESYLATE [Concomitant]
     Indication: HYPERTENSION
     Dates: start: 20060821
  10. SEVELAMER HYDROCHLORIDE [Concomitant]
     Indication: RENAL FAILURE CHRONIC
     Dates: start: 20060821
  11. SEVELAMER HYDROCHLORIDE [Concomitant]
     Indication: FOCAL GLOMERULOSCLEROSIS
  12. DIATZ-ZN [Concomitant]
     Indication: MEDICAL DIET
     Dosage: MULTIPLE MG
     Dates: start: 20060821
  13. CALCIUM CARBONATE [Concomitant]
     Indication: MINERAL SUPPLEMENTATION
     Dates: start: 20060821
  14. VIREAD [Concomitant]
     Indication: HIV INFECTION
     Dates: end: 20060929
  15. VIREAD [Concomitant]
     Dates: start: 20060929
  16. EMTRICITABINE [Concomitant]
     Indication: HIV INFECTION
     Dates: start: 20061002
  17. TRUVADA [Concomitant]
     Indication: HIV INFECTION

REACTIONS (1)
  - DEATH [None]
